FAERS Safety Report 9062022 (Version 1)
Quarter: 2013Q1

REPORT INFORMATION
  Report Type: Spontaneous
  Country: FR (occurrence: None)
  Receive Date: 20130122
  Receipt Date: 20130122
  Transmission Date: 20140127
  Serious: No
  Sender: FDA-Public Use
  Company Number: TPA2013A00830

PATIENT
  Age: 76 Year
  Sex: Female

DRUGS (2)
  1. ADENURIC [Suspect]
     Indication: HYPERURICAEMIA
     Dosage: 1 TABLET A DAY (1 IN 1 D)
     Route: 048
     Dates: start: 201112, end: 201112
  2. COLCHIMAX [Concomitant]

REACTIONS (2)
  - Rash generalised [None]
  - Pruritus [None]
